FAERS Safety Report 7984447-2 (Version None)
Quarter: 2011Q4

REPORT INFORMATION
  Report Type: 
  Country: None (occurrence: None)
  Receive Date: 20111214
  Receipt Date: 20110905
  Transmission Date: 20120403
  Serious: Yes (Death, Other)
  Sender: FDA-Public Use
  Company Number: MC201100601

PATIENT
  Age: 62 Year
  Sex: Male
  Weight: 59 kg

DRUGS (7)
  1. ANGIOMAX [Suspect]
     Dosage: INTRAVENOUS
     Route: 042
     Dates: start: 20110830, end: 20110830
  2. CLOPIDOGREL [Suspect]
     Indication: ACUTE CORONARY SYNDROME
     Dosage: ORAL
     Route: 048
     Dates: start: 20110826, end: 20110830
  3. PRAUGREL (PRASUGREL) [Suspect]
     Dosage: 60 MG, ORAL
     Route: 048
     Dates: start: 20110830, end: 20110830
  4. BECLOMETHASONE DIPROPIONATE [Concomitant]
  5. ENOXAPARIN SODIUM [Suspect]
     Indication: ACUTE CORONARY SYNDROME
     Dosage: 60 MG, BID, SUBCUTANEOUS
     Route: 058
     Dates: start: 20110826, end: 20110830
  6. ALBUTEROL SULFATE [Concomitant]
  7. ASPIRIN [Suspect]
     Indication: ACUTE CORONARY SYNDROME
     Dosage: ORAL
     Route: 048
     Dates: start: 20110826, end: 20110830

REACTIONS (3)
  - COMA SCALE ABNORMAL [None]
  - BRAIN DEATH [None]
  - HAEMORRHAGE INTRACRANIAL [None]
